FAERS Safety Report 7603136-7 (Version None)
Quarter: 2011Q3

REPORT INFORMATION
  Report Type: 
  Country: None (occurrence: None)
  Receive Date: 20110711
  Receipt Date: 20110711
  Transmission Date: 20111222
  Serious: No
  Sender: FDA-Public Use
  Company Number: None

PATIENT
  Age: 79 Year
  Sex: Female

DRUGS (2)
  1. REVLIMID [Suspect]
     Indication: ACUTE MYELOID LEUKAEMIA
     Dosage: REVLIMID 10MG DAILY ORALLY
     Route: 048
     Dates: start: 20100601, end: 20110610
  2. REVLIMID [Suspect]
     Dosage: REVLIMID 10MG DAILY X21D ORALLY
     Route: 048

REACTIONS (1)
  - THROMBOCYTOPENIA [None]
